FAERS Safety Report 6891463-0 (Version None)
Quarter: 2010Q3

REPORT INFORMATION
  Report Type: 
  Country: None (occurrence: None)
  Receive Date: 20100731
  Receipt Date: 20070723
  Transmission Date: 20110219
  Serious: No
  Sender: FDA-Public Use
  Company Number: US-PFIZER INC-2007059153

PATIENT
  Sex: Female
  Weight: 49.9 kg

DRUGS (2)
  1. METRONIDAZOLE [Suspect]
     Indication: CLOSTRIDIUM DIFFICILE COLITIS
     Dates: start: 20070714
  2. LISINOPRIL [Concomitant]

REACTIONS (4)
  - CLOSTRIDIUM TEST POSITIVE [None]
  - DIARRHOEA [None]
  - PHARYNGEAL ERYTHEMA [None]
  - WEIGHT DECREASED [None]
